FAERS Safety Report 4584170-0 (Version None)
Quarter: 2005Q1

REPORT INFORMATION
  Report Type: 
  Country: None (occurrence: None)
  Receive Date: 20050125
  Receipt Date: 20041028
  Transmission Date: 20050727
  Serious: No
  Sender: FDA-Public Use
  Company Number: USA041082622

PATIENT
  Age: 73 Year
  Sex: Female

DRUGS (5)
  1. FORTEO [Suspect]
     Indication: OSTEOPOROSIS
     Dates: start: 20040801
  2. MOTRIN [Concomitant]
  3. AVANDIA [Concomitant]
  4. GLIPIZIDE [Concomitant]
  5. PRINIVIL [Concomitant]

REACTIONS (6)
  - BURNING SENSATION [None]
  - EXOSTOSIS [None]
  - FEELING ABNORMAL [None]
  - HEADACHE [None]
  - PAIN IN EXTREMITY [None]
  - THROAT TIGHTNESS [None]
